FAERS Safety Report 21259944 (Version 1)
Quarter: 2022Q3

REPORT INFORMATION
  Report Type: Spontaneous
  Country: US (occurrence: None)
  Receive Date: 20220825
  Receipt Date: 20220825
  Transmission Date: 20221027
  Serious: No
  Sender: FDA-Public Use
  Company Number: None

PATIENT
  Age: 29 Year
  Sex: Male

DRUGS (1)
  1. HUMIRA [Suspect]
     Active Substance: ADALIMUMAB
     Route: 058
     Dates: start: 202111, end: 202208

REACTIONS (6)
  - Injection site mass [None]
  - Injection site pruritus [None]
  - Urticaria [None]
  - Swelling face [None]
  - Lip swelling [None]
  - Swollen tongue [None]

NARRATIVE: CASE EVENT DATE: 20220825
